FAERS Safety Report 9115691 (Version 1)
Quarter: 2013Q1

REPORT INFORMATION
  Report Type: Spontaneous
  Country: US (occurrence: None)
  Receive Date: 20130221
  Receipt Date: 20130221
  Transmission Date: 20140127
  Serious: Yes (Other)
  Sender: FDA-Public Use
  Company Number: None

PATIENT
  Age: 33 Year
  Sex: Female
  Weight: 69.85 kg

DRUGS (1)
  1. LOVAZA, 1GM, RELIANT PH [Suspect]
     Indication: BLOOD TRIGLYCERIDES INCREASED
     Dosage: 4 CAPSULES  DAILY  BY MOUTH
     Route: 048
     Dates: start: 201204, end: 201211

REACTIONS (3)
  - Pain in extremity [None]
  - Back pain [None]
  - Liver function test abnormal [None]
